FAERS Safety Report 17476854 (Version 6)
Quarter: 2020Q3

REPORT INFORMATION
  Report Type: Spontaneous
  Country: FR (occurrence: FR)
  Receive Date: 20200228
  Receipt Date: 20200722
  Transmission Date: 20201102
  Serious: Yes (Other)
  Sender: FDA-Public Use
  Company Number: FR-AUROBINDO-AUR-APL-2020-009810

PATIENT
  Age: 42 Year
  Sex: Female

DRUGS (15)
  1. OCTREOTIDE SOLUTION FOR INJECTION [Suspect]
     Active Substance: OCTREOTIDE
     Indication: ACROMEGALY
     Dosage: 20 MILLIGRAM
     Route: 030
     Dates: start: 20191105
  2. SANDOSTATINE [Suspect]
     Active Substance: OCTREOTIDE ACETATE
     Indication: PRODUCT USED FOR UNKNOWN INDICATION
     Dosage: UNK
     Route: 065
  3. DOXYCYCLINE. [Concomitant]
     Active Substance: DOXYCYCLINE
     Indication: PRODUCT USED FOR UNKNOWN INDICATION
     Dosage: 100 MILLIGRAM, ONCE A DAY
     Route: 065
     Dates: start: 20070101
  4. TRAMADOL. [Concomitant]
     Active Substance: TRAMADOL
     Indication: ANKYLOSING SPONDYLITIS
     Dosage: 200 MILLIGRAM, ONCE A DAY
     Route: 065
     Dates: start: 20070101
  5. OCTREOTIDE SOLUTION FOR INJECTION [Suspect]
     Active Substance: OCTREOTIDE
     Dosage: 20 MILLIGRAM
     Route: 030
     Dates: start: 20191203
  6. OCTREOTIDE SOLUTION FOR INJECTION [Suspect]
     Active Substance: OCTREOTIDE
     Dosage: 20 MILLIGRAM
     Route: 030
     Dates: start: 20200127
  7. OCTREOTIDE SOLUTION FOR INJECTION [Suspect]
     Active Substance: OCTREOTIDE
     Dosage: 20 MILLIGRAM
     Route: 030
     Dates: start: 20200225
  8. HYDROCORTISONE. [Concomitant]
     Active Substance: HYDROCORTISONE
     Indication: BLOOD CORTICOTROPHIN DECREASED
     Dosage: 20 MILLIGRAM, ONCE A DAY
     Route: 065
     Dates: start: 20190604
  9. OCTREOTIDE SOLUTION FOR INJECTION [Suspect]
     Active Substance: OCTREOTIDE
     Dosage: 20 MILLIGRAM
     Route: 030
     Dates: start: 20191231
  10. OCTREOTIDE SOLUTION FOR INJECTION [Suspect]
     Active Substance: OCTREOTIDE
     Dosage: 20 MILLIGRAM
     Route: 030
     Dates: start: 20200325
  11. OCTREOTIDE SOLUTION FOR INJECTION [Suspect]
     Active Substance: OCTREOTIDE
     Dosage: 20 MILLIGRAM
     Route: 030
     Dates: start: 20200425
  12. PAROXETINE. [Suspect]
     Active Substance: PAROXETINE
     Indication: DEPRESSION
     Dosage: 25 MILLIGRAM, ONCE A DAY
     Route: 065
     Dates: start: 20070101
  13. UVEDOSE [Concomitant]
     Active Substance: CHOLECALCIFEROL
     Indication: SUPPLEMENTATION THERAPY
     Dosage: UNK, EVERY THREE MONTHS
     Route: 065
  14. OCTREOTIDE SOLUTION FOR INJECTION [Suspect]
     Active Substance: OCTREOTIDE
     Dosage: 20 MILLIGRAM
     Route: 030
     Dates: start: 20200226
  15. CETIRIZINE [Concomitant]
     Active Substance: CETIRIZINE HYDROCHLORIDE
     Indication: PRODUCT USED FOR UNKNOWN INDICATION
     Dosage: 10 MILLIGRAM, ONCE A DAY
     Route: 065
     Dates: start: 20070101

REACTIONS (10)
  - Constipation [Not Recovered/Not Resolved]
  - Haemoptysis [Not Recovered/Not Resolved]
  - Mucous stools [Not Recovered/Not Resolved]
  - Headache [Not Recovered/Not Resolved]
  - Laryngeal disorder [Not Recovered/Not Resolved]
  - Proctitis [Not Recovered/Not Resolved]
  - Dizziness [Not Recovered/Not Resolved]
  - Haematochezia [Not Recovered/Not Resolved]
  - Alopecia [Not Recovered/Not Resolved]
  - Tinnitus [Not Recovered/Not Resolved]

NARRATIVE: CASE EVENT DATE: 20191105
